FAERS Safety Report 4545403-X (Version None)
Quarter: 2004Q4

REPORT INFORMATION
  Report Type: 
  Country: None (occurrence: None)
  Receive Date: 20041223
  Receipt Date: 20040831
  Transmission Date: 20050328
  Serious: No
  Sender: FDA-Public Use
  Company Number: US-JNJFOC-20040900419

PATIENT
  Age: 3 Month
  Sex: Female

DRUGS (1)
  1. ORTHO EVRA [Suspect]
     Indication: MATERNAL DRUGS AFFECTING FOETUS

REACTIONS (1)
  - CONSTIPATION [None]
